FAERS Safety Report 10190333 (Version 2)
Quarter: 2014Q2

REPORT INFORMATION
  Report Type: Spontaneous
  Country: US (occurrence: US)
  Receive Date: 20140522
  Receipt Date: 20140611
  Transmission Date: 20141212
  Serious: No
  Sender: FDA-Public Use
  Company Number: US-GILEAD-2014-0102746

PATIENT
  Sex: Female

DRUGS (3)
  1. LETAIRIS [Suspect]
     Indication: PRODUCT USED FOR UNKNOWN INDICATION
     Dosage: 10 MG, QD
     Route: 065
     Dates: start: 20121024
  2. TYVASO [Concomitant]
     Dosage: UNK UNK, QID
  3. ADCIRCA [Concomitant]

REACTIONS (6)
  - Pharyngeal oedema [Unknown]
  - Candida infection [Unknown]
  - Musculoskeletal discomfort [Unknown]
  - Peripheral swelling [Unknown]
  - Unevaluable event [Unknown]
  - Dizziness [Unknown]
